FAERS Safety Report 6719535-1 (Version None)
Quarter: 2010Q2

REPORT INFORMATION
  Report Type: 
  Country: None (occurrence: None)
  Receive Date: 20100511
  Receipt Date: 20100503
  Transmission Date: 20101027
  Serious: Yes (Hospitalization)
  Sender: FDA-Public Use
  Company Number: US-ROCHE-701816

PATIENT
  Age: 64 Year
  Sex: Male

DRUGS (4)
  1. BLINDED BEVACIZUMAB [Suspect]
     Indication: GLIOBLASTOMA MULTIFORME
     Dosage: CYCLE 4 WEEKS. 10 MG/KG ON DAY 1 AND 15 AND AT BEGNING OF WEEK 2
     Route: 042
  2. BLINDED BEVACIZUMAB [Suspect]
     Dosage: CYCLE 6 WEEKS.10 MG/KG OVER 30-90 MIN ON DAY 1 OF WEEK 04 AND 06
     Route: 042
  3. TEMOZOLOMIDE [Suspect]
     Indication: GLIOBLASTOMA MULTIFORME
     Dosage: CYCLE 4 WEEKS, 150-200 MG/M2 ON DAY 1-5
     Route: 048
  4. TEMOZOLOMIDE [Suspect]
     Dosage: 6 WEEK, 75 MG/M2 DAILY
     Route: 048

REACTIONS (1)
  - ENCEPHALOPATHY [None]
